FAERS Safety Report 6102265-7 (Version None)
Quarter: 2009Q1

REPORT INFORMATION
  Report Type: 
  Country: None (occurrence: None)
  Receive Date: 20090227
  Receipt Date: 20080214
  Transmission Date: 20090719
  Serious: Yes (Other)
  Sender: FDA-Public Use
  Company Number: 547330

PATIENT
  Age: 18 Year
  Sex: Male

DRUGS (2)
  1. ACCUTANE [Suspect]
     Indication: DRUG USE FOR UNKNOWN INDICATION
     Dates: end: 20070201
  2. AMNESTEEM [Suspect]
     Indication: DRUG USE FOR UNKNOWN INDICATION
     Dates: end: 20070201

REACTIONS (7)
  - ALOPECIA [None]
  - DERMATITIS [None]
  - DRUG INEFFECTIVE [None]
  - ERYTHEMA [None]
  - LIP DRY [None]
  - NASAL DRYNESS [None]
  - SKIN EXFOLIATION [None]
